FAERS Safety Report 8575577-5 (Version None)
Quarter: 2012Q3

REPORT INFORMATION
  Report Type: 
  Country: None (occurrence: None)
  Receive Date: 20120807
  Receipt Date: 20120730
  Transmission Date: 20120928
  Serious: Yes (Hospitalization)
  Sender: FDA-Public Use
  Company Number: US-US-EMD SERONO, INC.-7101547

PATIENT
  Sex: Female
  Weight: 84 kg

DRUGS (2)
  1. CELEBREX [Concomitant]
     Indication: PRODUCT USED FOR UNKNOWN INDICATION
  2. REBIF [Suspect]
     Indication: MULTIPLE SCLEROSIS
     Route: 058
     Dates: start: 20071101

REACTIONS (6)
  - JOINT STIFFNESS [None]
  - KNEE ARTHROPLASTY [None]
  - MULTIPLE SCLEROSIS RELAPSE [None]
  - DIARRHOEA [None]
  - COLD SWEAT [None]
  - GAIT DISTURBANCE [None]
